FAERS Safety Report 8295622-4 (Version None)
Quarter: 2012Q2

REPORT INFORMATION
  Report Type: 
  Country: None (occurrence: None)
  Receive Date: 20120418
  Receipt Date: 20120412
  Transmission Date: 20120825
  Serious: Yes (Life-Threatening, Hospitalization, Disabling, Other)
  Sender: FDA-Public Use
  Company Number: PHEH2012US001941

PATIENT
  Sex: Male
  Weight: 78.912 kg

DRUGS (4)
  1. GILENYA [Suspect]
     Indication: RELAPSING-REMITTING MULTIPLE SCLEROSIS
     Dosage: 0.5 MG, QD
     Route: 048
     Dates: start: 20110101
  2. MULTI-VITAMIN [Concomitant]
     Dosage: UNK UKN, UNK
  3. FISH OIL [Concomitant]
     Dosage: UNK UKN, UNK
  4. XANAX [Concomitant]
     Indication: ANXIETY
     Dosage: 0.5 MG, QD
     Route: 048

REACTIONS (19)
  - NERVOUS SYSTEM DISORDER [None]
  - NASAL MUCOSAL DISORDER [None]
  - ELECTROENCEPHALOGRAM ABNORMAL [None]
  - PARTIAL SEIZURES WITH SECONDARY GENERALISATION [None]
  - FATIGUE [None]
  - CONVULSION [None]
  - LOSS OF CONSCIOUSNESS [None]
  - ARACHNOID CYST [None]
  - APHASIA [None]
  - POSTICTAL STATE [None]
  - TONGUE BITING [None]
  - AURA [None]
  - SENSORY DISTURBANCE [None]
  - NUCLEAR MAGNETIC RESONANCE IMAGING BRAIN ABNORMAL [None]
  - CONFUSIONAL STATE [None]
  - AMNESIA [None]
  - LETHARGY [None]
  - GRAND MAL CONVULSION [None]
  - COMPLEX PARTIAL SEIZURES [None]
